FAERS Safety Report 6483470-7 (Version None)
Quarter: 2009Q4

REPORT INFORMATION
  Report Type: 
  Country: None (occurrence: None)
  Receive Date: 20091208
  Receipt Date: 20091208
  Transmission Date: 20100525
  Serious: No
  Sender: FDA-Public Use
  Company Number: None

PATIENT
  Age: 56 Year
  Sex: Female
  Weight: 59.8748 kg

DRUGS (1)
  1. ACTONEL [Suspect]
     Indication: OSTEOPOROSIS
     Dosage: 150 MG MONTHLY
     Dates: start: 20091201, end: 20091201

REACTIONS (4)
  - ARTHRALGIA [None]
  - EYE INFLAMMATION [None]
  - INFLUENZA LIKE ILLNESS [None]
  - RENAL PAIN [None]
